FAERS Safety Report 13361601 (Version 1)
Quarter: 2017Q1

REPORT INFORMATION
  Report Type: Spontaneous
  Country: US (occurrence: US)
  Receive Date: 20170323
  Receipt Date: 20170323
  Transmission Date: 20170429
  Serious: Yes (Hospitalization)
  Sender: FDA-Public Use
  Company Number: US-ROCHE-1867997

PATIENT
  Sex: Female

DRUGS (11)
  1. PREDNISONE. [Concomitant]
     Active Substance: PREDNISONE
  2. ASPIRIN. [Concomitant]
     Active Substance: ASPIRIN
  3. ZITHROMAX [Concomitant]
     Active Substance: AZITHROMYCIN DIHYDRATE
  4. ESBRIET [Suspect]
     Active Substance: PIRFENIDONE
     Indication: IDIOPATHIC PULMONARY FIBROSIS
     Dosage: 534 MG IN THE MORNING, 267 MG AT LUNCH AND 534 MG IN THE NIGHT.
     Route: 048
     Dates: start: 20160420
  5. AMLODIPINE [Concomitant]
     Active Substance: AMLODIPINE BESYLATE
  6. RESTASIS [Concomitant]
     Active Substance: CYCLOSPORINE
  7. PREVACID [Concomitant]
     Active Substance: LANSOPRAZOLE
  8. VENTOLINE [Concomitant]
     Active Substance: ALBUTEROL
  9. MYRBETRIQ [Concomitant]
     Active Substance: MIRABEGRON
  10. SPIRIVA [Concomitant]
     Active Substance: TIOTROPIUM BROMIDE MONOHYDRATE
  11. MELATONIN [Concomitant]
     Active Substance: MELATONIN

REACTIONS (2)
  - Osteoporosis [Unknown]
  - Diarrhoea [Unknown]
